FAERS Safety Report 13769664 (Version 1)
Quarter: 2017Q3

REPORT INFORMATION
  Report Type: Spontaneous
  Country: US (occurrence: US)
  Receive Date: 20170719
  Receipt Date: 20170719
  Transmission Date: 20171127
  Serious: No
  Sender: FDA-Public Use
  Company Number: US-009507513-1707USA006541

PATIENT
  Sex: Female

DRUGS (1)
  1. INVANZ [Suspect]
     Active Substance: ERTAPENEM SODIUM

REACTIONS (4)
  - Flushing [Unknown]
  - Fatigue [Unknown]
  - Tremor [Unknown]
  - Nervousness [Unknown]
